FAERS Safety Report 13344881 (Version 6)
Quarter: 2018Q4

REPORT INFORMATION
  Report Type: Spontaneous
  Country: JP (occurrence: JP)
  Receive Date: 20170317
  Receipt Date: 20181213
  Transmission Date: 20190204
  Serious: Yes (Hospitalization, Other)
  Sender: FDA-Public Use
  Company Number: JP-AMGEN-JPNSP2017041578

PATIENT
  Age: 59 Year
  Sex: Female
  Weight: 31 kg

DRUGS (16)
  1. PARIET [Concomitant]
     Active Substance: RABEPRAZOLE SODIUM
     Indication: GASTRIC ULCER
     Dosage: UNK
     Route: 048
  2. PROPOFOL. [Concomitant]
     Active Substance: PROPOFOL
     Indication: INDUCTION OF ANAESTHESIA
     Dosage: 60 MG, QD
     Route: 042
     Dates: start: 20150713, end: 20150713
  3. EPHEDRIN [Concomitant]
     Active Substance: EPHEDRINE HYDROCHLORIDE
     Indication: SURGERY
     Dosage: 5 MG, BID
     Route: 042
     Dates: start: 20150713, end: 20150713
  4. PROPOFOL. [Concomitant]
     Active Substance: PROPOFOL
     Indication: SURGERY
     Dosage: UNK
     Route: 042
  5. SUGAMMADEX SODIUM [Concomitant]
     Active Substance: SUGAMMADEX SODIUM
     Indication: SURGERY
     Dosage: 60 MG, QD
     Route: 042
     Dates: start: 20150713, end: 20150713
  6. REMIFENTANIL [Concomitant]
     Active Substance: REMIFENTANIL
     Indication: MAINTENANCE OF ANAESTHESIA
     Dosage: UNK
     Route: 042
     Dates: start: 20150713, end: 20150713
  7. CEFAZOLIN SODIUM. [Concomitant]
     Active Substance: CEFAZOLIN SODIUM
     Indication: SURGERY
     Dosage: 1 G, QD
     Dates: start: 20150713, end: 20150713
  8. PRALIA [Suspect]
     Active Substance: DENOSUMAB
     Indication: OSTEOPOROSIS
     Dosage: 60 MG, Q6MO (TOTAL 2 TIMES)
     Route: 058
     Dates: start: 201311, end: 201406
  9. ROCURONIUM [Concomitant]
     Active Substance: ROCURONIUM BROMIDE
     Indication: SURGERY
     Dosage: UNK
     Route: 042
     Dates: start: 20150713, end: 20150713
  10. DESFLURANE. [Concomitant]
     Active Substance: DESFLURANE
     Indication: SURGERY
     Dosage: UNK
     Route: 065
     Dates: start: 20150713, end: 20150713
  11. DESFLURANE. [Concomitant]
     Active Substance: DESFLURANE
     Indication: SURGERY
  12. LIDOCAINE. [Concomitant]
     Active Substance: LIDOCAINE
     Indication: SURGERY
     Dosage: 8 ML, UNK
     Route: 065
     Dates: start: 20150713, end: 20150713
  13. ROCURONIUM BROMIDE. [Concomitant]
     Active Substance: ROCURONIUM BROMIDE
     Indication: SURGERY
     Dosage: 20 MG, QD
     Route: 042
     Dates: start: 20150713, end: 20150713
  14. ADRENALINE [Concomitant]
     Active Substance: EPINEPHRINE
  15. CEFAZOLIN [Concomitant]
     Active Substance: CEFAZOLIN
     Indication: SURGERY
     Dosage: 1 G, QD
     Route: 042
     Dates: start: 20150713, end: 20150713
  16. REMIFENTANIL [Concomitant]
     Active Substance: REMIFENTANIL
     Indication: SURGERY
     Dosage: UNK
     Route: 042

REACTIONS (3)
  - Periodontitis [Recovered/Resolved]
  - Osteonecrosis of jaw [Recovered/Resolved]
  - Adrenocortical insufficiency acute [Recovered/Resolved]

NARRATIVE: CASE EVENT DATE: 201501
